FAERS Safety Report 12707093 (Version 2)
Quarter: 2016Q3

REPORT INFORMATION
  Report Type: Report from Study
  Country: PL (occurrence: PL)
  Receive Date: 20160901
  Receipt Date: 20160927
  Transmission Date: 20161109
  Serious: Yes (Hospitalization)
  Sender: FDA-Public Use
  Company Number: PHHY2016PL118820

PATIENT
  Age: 66 Year
  Sex: Male

DRUGS (1)
  1. TASIGNA [Suspect]
     Active Substance: NILOTINIB
     Indication: CHRONIC MYELOID LEUKAEMIA
     Dosage: 400 MG, BID
     Route: 048
     Dates: start: 20120625, end: 201608

REACTIONS (12)
  - Haemoglobin decreased [Unknown]
  - Platelet-large cell ratio decreased [Unknown]
  - Peripheral artery occlusion [Unknown]
  - Arterial occlusive disease [Unknown]
  - Haematocrit decreased [Unknown]
  - Red blood cell count decreased [Unknown]
  - Mean platelet volume decreased [Unknown]
  - Peripheral ischaemia [Unknown]
  - Mean cell haemoglobin concentration decreased [Unknown]
  - Platelet distribution width decreased [Unknown]
  - Red cell distribution width increased [Unknown]
  - Lymphocyte count increased [Unknown]

NARRATIVE: CASE EVENT DATE: 201604
